FAERS Safety Report 5302955-X (Version None)
Quarter: 2007Q2

REPORT INFORMATION
  Report Type: 
  Country: None (occurrence: None)
  Receive Date: 20070413
  Receipt Date: 20070404
  Transmission Date: 20071010
  Serious: Yes (Hospitalization)
  Sender: FDA-Public Use
  Company Number: 232622K07USA

PATIENT
  Age: 33 Year
  Sex: Female

DRUGS (4)
  1. REBIF [Suspect]
     Indication: MULTIPLE SCLEROSIS
     Dosage: 44 MCG, 3 IN 1 WEEKS, SUBCUTANEOUS
     Route: 058
     Dates: start: 20050430
  2. PROVIGIL [Concomitant]
  3. NORFLEX [Concomitant]
  4. ADVIL [Concomitant]

REACTIONS (3)
  - MIGRAINE [None]
  - MULTIPLE SCLEROSIS [None]
  - STRESS [None]
